FAERS Safety Report 17788294 (Version 1)
Quarter: 2020Q2

REPORT INFORMATION
  Report Type: Spontaneous
  Country: US (occurrence: US)
  Receive Date: 20200515
  Receipt Date: 20200515
  Transmission Date: 20200714
  Serious: Yes (Death, Hospitalization)
  Sender: FDA-Public Use
  Company Number: US-ROCHE-2595992

PATIENT
  Age: 44 Year
  Sex: Female

DRUGS (1)
  1. OCREVUS [Suspect]
     Active Substance: OCRELIZUMAB
     Indication: SECONDARY PROGRESSIVE MULTIPLE SCLEROSIS
     Route: 065
     Dates: start: 2017

REACTIONS (6)
  - Respiratory failure [Fatal]
  - Encephalopathy [Unknown]
  - Nausea [Unknown]
  - Pyrexia [Unknown]
  - Renal failure [Unknown]
  - COVID-19 [Unknown]
